FAERS Safety Report 18451995 (Version 1)
Quarter: 2020Q4

REPORT INFORMATION
  Report Type: Spontaneous
  Country: US (occurrence: US)
  Receive Date: 20201031
  Receipt Date: 20201031
  Transmission Date: 20210114
  Serious: Yes (Life-Threatening, Hospitalization)
  Sender: FDA-Public Use
  Company Number: None

PATIENT
  Age: 45 Year
  Sex: Female
  Weight: 60.6 kg

DRUGS (14)
  1. CEFEPIME [Suspect]
     Active Substance: CEFEPIME HYDROCHLORIDE
     Indication: OSTEOMYELITIS
     Route: 010
     Dates: start: 20200826, end: 20200901
  2. FLUCONAZOLE 150MG [Concomitant]
     Active Substance: FLUCONAZOLE
  3. RENVELA [Concomitant]
     Active Substance: SEVELAMER CARBONATE
  4. SENNA 8.6MG [Concomitant]
  5. WELLBUTRIN XL [Concomitant]
     Active Substance: BUPROPION HYDROCHLORIDE
  6. NOVOLOG FLEXPEN U-100 [Concomitant]
  7. NORETHINDRONE 5MG [Concomitant]
     Active Substance: NORETHINDRONE
  8. BASAGLAR KIWIPEN U-100 [Concomitant]
  9. TRAZODONE [Concomitant]
     Active Substance: TRAZODONE HYDROCHLORIDE
  10. ELLURA ORAL [Concomitant]
  11. NEPHRO-VITE 0.8MG [Concomitant]
  12. PREDNISONE 2.5MG [Concomitant]
     Active Substance: PREDNISONE
  13. MEDROXYPROGESTERONE 10MG [Concomitant]
     Active Substance: MEDROXYPROGESTERONE ACETATE
  14. LEVOTHYROXINE 50MCG [Concomitant]
     Active Substance: LEVOTHYROXINE

REACTIONS (12)
  - Encephalopathy [None]
  - Dialysis [None]
  - Status epilepticus [None]
  - Mental status changes [None]
  - Moaning [None]
  - Metabolic encephalopathy [None]
  - Restless legs syndrome [None]
  - Neurotoxicity [None]
  - Therapy interrupted [None]
  - Blood pressure systolic increased [None]
  - Hyporesponsive to stimuli [None]
  - Agitation [None]

NARRATIVE: CASE EVENT DATE: 20200901
